FAERS Safety Report 18719405 (Version 1)
Quarter: 2021Q1

REPORT INFORMATION
  Report Type: Report from Study
  Country: DE (occurrence: DE)
  Receive Date: 20210108
  Receipt Date: 20210108
  Transmission Date: 20210419
  Serious: Yes (Hospitalization)
  Sender: FDA-Public Use
  Company Number: DE-EISAI MEDICAL RESEARCH-EC-2021-086109

PATIENT
  Age: 24 Year
  Sex: Female

DRUGS (20)
  1. FYCOMPA [Suspect]
     Active Substance: PERAMPANEL
     Route: 048
     Dates: start: 20201102, end: 20201104
  2. FYCOMPA [Suspect]
     Active Substance: PERAMPANEL
     Route: 048
     Dates: start: 20201110, end: 20201130
  3. PHENOBARBITAL. [Concomitant]
     Active Substance: PHENOBARBITAL
     Route: 048
     Dates: start: 20201112, end: 20201118
  4. FYCOMPA [Suspect]
     Active Substance: PERAMPANEL
     Indication: EPILEPSY
     Route: 048
     Dates: start: 20201019, end: 20201025
  5. FYCOMPA [Suspect]
     Active Substance: PERAMPANEL
     Route: 048
     Dates: start: 20201026, end: 20201101
  6. PHENOBARBITAL. [Concomitant]
     Active Substance: PHENOBARBITAL
     Indication: EPILEPSY
     Route: 048
     Dates: start: 201806, end: 20201018
  7. PHENOBARBITAL. [Concomitant]
     Active Substance: PHENOBARBITAL
     Route: 048
     Dates: start: 20201019, end: 20201104
  8. LAMOTRIGINE. [Concomitant]
     Active Substance: LAMOTRIGINE
     Route: 048
     Dates: start: 20201208, end: 20201210
  9. FYCOMPA [Suspect]
     Active Substance: PERAMPANEL
     Route: 048
     Dates: start: 20201105, end: 20201109
  10. LAMOTRIGINE. [Concomitant]
     Active Substance: LAMOTRIGINE
     Route: 048
     Dates: start: 20201204, end: 20201205
  11. VALPROATE [Concomitant]
     Active Substance: VALPROIC ACID
     Route: 048
     Dates: start: 20201209, end: 20201215
  12. FYCOMPA [Suspect]
     Active Substance: PERAMPANEL
     Route: 048
     Dates: start: 20201201, end: 20201208
  13. PHENOBARBITAL. [Concomitant]
     Active Substance: PHENOBARBITAL
     Route: 048
     Dates: start: 20201105, end: 20201111
  14. LAMOTRIGINE. [Concomitant]
     Active Substance: LAMOTRIGINE
     Route: 048
     Dates: start: 20201202, end: 20201203
  15. LAMOTRIGINE. [Concomitant]
     Active Substance: LAMOTRIGINE
     Route: 048
     Dates: start: 20201206, end: 20201207
  16. LAMOTRIGINE. [Concomitant]
     Active Substance: LAMOTRIGINE
     Indication: EPILEPSY
     Route: 048
     Dates: start: 201111, end: 20201130
  17. VALPROATE [Concomitant]
     Active Substance: VALPROIC ACID
     Indication: EPILEPSY
     Route: 048
     Dates: start: 20201201, end: 20201208
  18. FYCOMPA [Suspect]
     Active Substance: PERAMPANEL
     Route: 048
     Dates: start: 20201209, end: 20210101
  19. LAMOTRIGINE. [Concomitant]
     Active Substance: LAMOTRIGINE
     Route: 048
     Dates: start: 20201201, end: 20201201
  20. VALPROATE [Concomitant]
     Active Substance: VALPROIC ACID
     Route: 048
     Dates: start: 20201216

REACTIONS (2)
  - Aggression [Recovering/Resolving]
  - Suicidal ideation [Recovering/Resolving]

NARRATIVE: CASE EVENT DATE: 20201231
